FAERS Safety Report 6474226-X (Version None)
Quarter: 2009Q4

REPORT INFORMATION
  Report Type: 
  Country: None (occurrence: None)
  Receive Date: 20091204
  Receipt Date: 20091124
  Transmission Date: 20100525
  Serious: Yes (Hospitalization)
  Sender: FDA-Public Use
  Company Number: PHHY2009AR36598

PATIENT
  Sex: Female

DRUGS (2)
  1. ACLASTA [Suspect]
     Indication: OSTEOPOROSIS
     Dosage: UNK
     Dates: start: 20070810
  2. ACLASTA [Suspect]
     Dosage: UNK
     Dates: start: 20081001

REACTIONS (3)
  - BONE OPERATION [None]
  - FALL [None]
  - FEMUR FRACTURE [None]
